FAERS Safety Report 10036335 (Version 1)
Quarter: 2014Q1

REPORT INFORMATION
  Report Type: Spontaneous
  Country: DK (occurrence: JP)
  Receive Date: 20140325
  Receipt Date: 20140325
  Transmission Date: 20141002
  Serious: Yes (Other)
  Sender: FDA-Public Use
  Company Number: JP-FRI-1000065766

PATIENT
  Age: 34 Year
  Sex: Male
  Weight: 74 kg

DRUGS (3)
  1. LEXAPRO [Suspect]
     Indication: DEPRESSIVE SYMPTOM
     Dosage: 10 MG
     Route: 048
     Dates: start: 20140123, end: 20140125
  2. ZOLPIDEM TARTRATE [Concomitant]
     Indication: SEDATIVE THERAPY
     Dosage: 5 MG
     Route: 048
     Dates: start: 20140123, end: 20140126
  3. SORENTMIN [Concomitant]
     Indication: SEDATIVE THERAPY
     Dosage: 0.25 MG
     Route: 048
     Dates: start: 20140123, end: 20140126

REACTIONS (2)
  - Activation syndrome [Recovered/Resolved]
  - Suicidal ideation [Recovered/Resolved]
